FAERS Safety Report 8486919 (Version 4)
Quarter: 2017Q1

REPORT INFORMATION
  Report Type: Spontaneous
  Country: ES (occurrence: ES)
  Receive Date: 20120402
  Receipt Date: 20170328
  Transmission Date: 20170429
  Serious: Yes (Other)
  Sender: FDA-Public Use
  Company Number: ES-JNJFOC-20120311088

PATIENT
  Age: 26 Year
  Sex: Male

DRUGS (9)
  1. AFLUON [Concomitant]
     Active Substance: AZELASTINE HYDROCHLORIDE
     Indication: HYPERSENSITIVITY
     Route: 065
  2. TRILEPTAL [Concomitant]
     Active Substance: OXCARBAZEPINE
     Indication: PSYCHOMOTOR HYPERACTIVITY
     Route: 065
  3. CONCERTA [Suspect]
     Active Substance: METHYLPHENIDATE HYDROCHLORIDE
     Indication: PSYCHOMOTOR HYPERACTIVITY
     Dosage: HAD ONE TABLET IN THE MORNING
     Route: 048
     Dates: start: 20120317, end: 20120317
  4. ACETYLCYSTEINE. [Concomitant]
     Active Substance: ACETYLCYSTEINE
     Indication: HYPERSENSITIVITY
     Route: 065
  5. DEPAKIN [Concomitant]
     Active Substance: VALPROATE SODIUM
     Indication: PSYCHOMOTOR HYPERACTIVITY
     Route: 065
  6. TRANXILIUM [Concomitant]
     Active Substance: CLORAZEPATE DIPOTASSIUM
     Indication: PSYCHOMOTOR HYPERACTIVITY
     Route: 030
  7. NASONEX [Concomitant]
     Active Substance: MOMETASONE FUROATE
     Indication: HYPERSENSITIVITY
     Route: 065
  8. SERETIDE [Concomitant]
     Active Substance: FLUTICASONE PROPIONATE\SALMETEROL XINAFOATE
     Indication: HYPERSENSITIVITY
     Route: 065
  9. DESLORATADINE. [Concomitant]
     Active Substance: DESLORATADINE
     Indication: HYPERSENSITIVITY
     Route: 065

REACTIONS (6)
  - Nervousness [Recovering/Resolving]
  - Nervous system disorder [Recovering/Resolving]
  - Muscle contracture [Recovering/Resolving]
  - Agitation [Recovering/Resolving]
  - Dysphagia [Recovering/Resolving]
  - Restlessness [Recovering/Resolving]

NARRATIVE: CASE EVENT DATE: 20120317
